FAERS Safety Report 4637397-3 (Version None)
Quarter: 2005Q2

REPORT INFORMATION
  Report Type: 
  Country: None (occurrence: None)
  Receive Date: 20050418
  Receipt Date: 20050407
  Transmission Date: 20051028
  Serious: Yes (Death)
  Sender: FDA-Public Use
  Company Number: JP-JNJFOC-20050303673

PATIENT
  Sex: Male

DRUGS (15)
  1. FENTANYL CITRATE [Suspect]
     Indication: CANCER PAIN
     Route: 062
  2. MIXED AMINO ACID, CARBOHYDRATE, ELECTROLYTE COMBINED [Concomitant]
     Indication: DEHYDRATION
     Dosage: TWO TO THREE 500 MILLILITERS PER DAY
     Route: 041
  3. GLUCOSE ACETATED RINGERS SOLUTION [Concomitant]
     Indication: DEHYDRATION
     Route: 041
  4. OXYCODONE HCL [Concomitant]
     Route: 049
  5. OXYCODONE HCL [Concomitant]
     Route: 049
  6. OXYCODONE HCL [Concomitant]
     Route: 049
  7. OXYCODONE HCL [Concomitant]
     Indication: CANCER PAIN
     Route: 049
  8. LACTATED RINGER'S [Concomitant]
     Route: 041
  9. LACTATED RINGER'S [Concomitant]
     Route: 041
  10. LACTATED RINGER'S [Concomitant]
     Indication: DEHYDRATION
     Route: 041
  11. CEFPIROME SULFATE [Concomitant]
     Indication: PNEUMONIA
     Route: 041
  12. FLUNITRAZEPAM [Concomitant]
     Indication: INSOMNIA
     Route: 041
  13. BROMHEXINE HYDROCHLORIDE [Concomitant]
     Route: 042
  14. OMEPRAZOLE SODIUM [Concomitant]
     Route: 042
  15. OMEPRAZOLE SODIUM [Concomitant]
     Indication: GASTRIC ULCER
     Route: 042

REACTIONS (5)
  - BLADDER CANCER [None]
  - HYPERCHLORAEMIA [None]
  - HYPERNATRAEMIA [None]
  - MALIGNANT NEOPLASM PROGRESSION [None]
  - RENAL FAILURE [None]
